FAERS Safety Report 6444013-7 (Version None)
Quarter: 2009Q4

REPORT INFORMATION
  Report Type: 
  Country: None (occurrence: None)
  Receive Date: 20091116
  Receipt Date: 20091116
  Transmission Date: 20100525
  Serious: Yes (Other)
  Sender: FDA-Public Use
  Company Number: None

PATIENT
  Age: 24 Year
  Sex: Male
  Weight: 68.0396 kg

DRUGS (2)
  1. SENNA 8.6MG PREMIER VALUE [Suspect]
     Indication: CONSTIPATION
     Dosage: UP TO 4 TABS 2 TIMES PER DAY PO
     Route: 048
     Dates: start: 20090801
  2. PANAX GINSENG 100MG RITE AID [Suspect]
     Indication: FATIGUE MANAGEMENT
     Dosage: 1 TAB 1 TIME PER DAY PO
     Route: 048
     Dates: start: 20091002, end: 20091025

REACTIONS (3)
  - ARRHYTHMIA [None]
  - HEART RATE IRREGULAR [None]
  - POTENTIATING DRUG INTERACTION [None]
